FAERS Safety Report 5039117-X (Version None)
Quarter: 2006Q2

REPORT INFORMATION
  Report Type: 
  Country: None (occurrence: None)
  Receive Date: 20060626
  Receipt Date: 20060615
  Transmission Date: 20061013
  Serious: Yes (Other)
  Sender: FDA-Public Use
  Company Number: US-2006-015429

PATIENT
  Age: 74 Year
  Sex: Female
  Weight: 84 kg

DRUGS (1)
  1. MAGNEVIST [Suspect]
     Indication: NUCLEAR MAGNETIC RESONANCE IMAGING BRAIN
     Dosage: 15 ML, 1 DOSE, INTRAVENOUS
     Route: 042
     Dates: start: 20060606, end: 20060606

REACTIONS (3)
  - ERYTHEMA [None]
  - HYPERTENSIVE CRISIS [None]
  - REFUSAL OF TREATMENT BY PATIENT [None]
